FAERS Safety Report 11272215 (Version 2)
Quarter: 2015Q3

REPORT INFORMATION
  Report Type: Spontaneous
  Country: US (occurrence: None)
  Receive Date: 20150713
  Receipt Date: 20150812
  Transmission Date: 20151125
  Serious: Yes (Death, Other)
  Sender: FDA-Public Use
  Company Number: ADR-2015-01289

PATIENT
  Age: 47 Year
  Sex: Male

DRUGS (6)
  1. SERTRALINE [Suspect]
     Active Substance: SERTRALINE HYDROCHLORIDE
     Route: 048
     Dates: start: 20140915
  2. SOLU-MEDROL [Suspect]
     Active Substance: METHYLPREDNISOLONE SODIUM SUCCINATE
     Route: 042
     Dates: start: 20150213
  3. TYLENOL WITH CODEINE [Suspect]
     Active Substance: ACETAMINOPHEN\CODEINE PHOSPHATE
     Route: 048
     Dates: start: 20140915
  4. AZITHROMYCIN [Suspect]
     Active Substance: AZITHROMYCIN ANHYDROUS
     Dosage: 200 MG/5 ML
     Route: 048
     Dates: start: 20150102
  5. LIORESAL [Suspect]
     Active Substance: BACLOFEN
     Indication: MUSCLE SPASTICITY
  6. ORAL BACLOFEN [Suspect]
     Active Substance: BACLOFEN
     Dates: start: 20141208

REACTIONS (4)
  - Multiple sclerosis [None]
  - Pneumonia [None]
  - Pneumonia aspiration [None]
  - Disease complication [None]

NARRATIVE: CASE EVENT DATE: 20150529
